FAERS Safety Report 6146645-2 (Version None)
Quarter: 2009Q2

REPORT INFORMATION
  Report Type: 
  Country: None (occurrence: None)
  Receive Date: 20090403
  Receipt Date: 20090320
  Transmission Date: 20091009
  Serious: Yes (Other)
  Sender: FDA-Public Use
  Company Number: 2009S1002238

PATIENT
  Sex: Male

DRUGS (3)
  1. PHENYTOIN SODIUM [Suspect]
     Indication: EPILEPSY
     Dosage: 400 MG; DAILY; ORAL ; 300 MG; DAILY;ORAL
     Route: 048
  2. PHENYTOIN SODIUM [Suspect]
     Indication: GRAND MAL CONVULSION
     Dosage: 400 MG; DAILY; ORAL ; 300 MG; DAILY;ORAL
     Route: 048
  3. ASPIRIN [Concomitant]

REACTIONS (13)
  - BALANCE DISORDER [None]
  - DISTURBANCE IN ATTENTION [None]
  - DRUG LEVEL INCREASED [None]
  - FALL [None]
  - GAIT DISTURBANCE [None]
  - GRAND MAL CONVULSION [None]
  - HAEMATEMESIS [None]
  - HYPERHIDROSIS [None]
  - INSOMNIA [None]
  - PAIN [None]
  - PARTIAL SEIZURES [None]
  - RENAL DISORDER [None]
  - VISION BLURRED [None]
